FAERS Safety Report 7956669-8 (Version None)
Quarter: 2011Q4

REPORT INFORMATION
  Report Type: 
  Country: None (occurrence: None)
  Receive Date: 20111205
  Receipt Date: 20111128
  Transmission Date: 20120403
  Serious: Yes (Hospitalization, Other)
  Sender: FDA-Public Use
  Company Number: US-JNJFOC-20101007538

PATIENT
  Sex: Female

DRUGS (4)
  1. CIPROFLOXACIN [Suspect]
     Indication: BRONCHITIS
     Route: 048
  2. LEVAQUIN [Suspect]
     Indication: BRONCHITIS
     Route: 048
     Dates: start: 20090401
  3. ZOCOR [Concomitant]
     Indication: BLOOD CHOLESTEROL
     Route: 065
  4. ACETAMINOPHEN [Concomitant]
     Indication: PAIN
     Route: 065

REACTIONS (4)
  - TENDON RUPTURE [None]
  - RESPIRATORY ARREST [None]
  - ROTATOR CUFF SYNDROME [None]
  - BIPOLAR DISORDER [None]
